FAERS Safety Report 5123562-8 (Version None)
Quarter: 2006Q4

REPORT INFORMATION
  Report Type: 
  Country: None (occurrence: None)
  Receive Date: 20061005
  Receipt Date: 20060925
  Transmission Date: 20070319
  Serious: Yes (Life-Threatening, Hospitalization)
  Sender: FDA-Public Use
  Company Number: 2006105111

PATIENT
  Age: 76 Year
  Sex: Male
  Weight: 88 kg

DRUGS (8)
  1. SUTENT [Suspect]
     Indication: METASTATIC RENAL CELL CARCINOMA
     Dosage: 50 MG (50 MG, DAILY), ORAL
     Route: 048
     Dates: start: 20060706, end: 20060822
  2. METOPROLOL SUCCINATE [Concomitant]
  3. THYROXIN               (LEVOTHYROXINE SODIUM) [Concomitant]
  4. HYDROCORTISONE [Concomitant]
  5. CALCITRIOL [Concomitant]
  6. CALCIUM (CALCIUM) [Concomitant]
  7. POTASSIUM (POTASSIUM) [Concomitant]
  8. MAGNESIUM (MAGNESIUM) [Concomitant]

REACTIONS (12)
  - ACUTE PRERENAL FAILURE [None]
  - ADRENOCORTICAL INSUFFICIENCY ACUTE [None]
  - COMA [None]
  - CONDITION AGGRAVATED [None]
  - DEHYDRATION [None]
  - DIALYSIS [None]
  - DYSPNOEA [None]
  - HYPOCALCAEMIA [None]
  - HYPONATRAEMIA [None]
  - NEOPLASM PROGRESSION [None]
  - RENAL FAILURE [None]
  - SOMNOLENCE [None]
